FAERS Safety Report 6961538-6 (Version None)
Quarter: 2010Q3

REPORT INFORMATION
  Report Type: 
  Country: None (occurrence: None)
  Receive Date: 20100901
  Receipt Date: 20100827
  Transmission Date: 20110219
  Serious: Yes (Hospitalization)
  Sender: FDA-Public Use
  Company Number: US-CVT-100474

PATIENT

DRUGS (2)
  1. RANEXA [Suspect]
     Indication: ANGINA PECTORIS
     Dosage: 500 MG, BID
     Route: 048
     Dates: start: 20100407, end: 20100509
  2. LIPITOR                            /01326101/ [Concomitant]
     Dates: end: 20100520

REACTIONS (1)
  - MUSCULAR WEAKNESS [None]
